FAERS Safety Report 10403732 (Version 1)
Quarter: 2014Q3

REPORT INFORMATION
  Report Type: Spontaneous
  Country: US (occurrence: US)
  Receive Date: 20140822
  Receipt Date: 20140822
  Transmission Date: 20150326
  Serious: No
  Sender: FDA-Public Use
  Company Number: US-NOVEN-14US009530

PATIENT
  Age: 60 Year
  Sex: Female

DRUGS (3)
  1. MINIVELLE [Suspect]
     Active Substance: ESTRADIOL
     Indication: DISTURBANCE IN ATTENTION
     Dosage: 0.05 MG/DAY, UNK
     Route: 062
     Dates: start: 201403
  2. MINIVELLE [Suspect]
     Active Substance: ESTRADIOL
     Indication: INSOMNIA
  3. MINIVELLE [Suspect]
     Active Substance: ESTRADIOL
     Indication: DEPRESSION

REACTIONS (4)
  - Memory impairment [Not Recovered/Not Resolved]
  - Breast tenderness [Not Recovered/Not Resolved]
  - Off label use [Not Recovered/Not Resolved]
  - Drug prescribing error [Not Recovered/Not Resolved]

NARRATIVE: CASE EVENT DATE: 2014
